FAERS Safety Report 8061673 (Version 3)
Quarter: 2012Q4

REPORT INFORMATION
  Report Type: 
  Country: US (occurrence: US)
  Receive Date: 20110729
  Receipt Date: 20121024
  Transmission Date: 20130627
  Serious: No
  Sender: FDA-Public Use
  Company Number: US-PFIZER INC-2011171933

PATIENT
  Sex: Female

DRUGS (1)
  1. CHANTIX [Suspect]
     Indication: SMOKING CESSATION THERAPY
     Dosage: UNK, 2x/day
     Dates: start: 2011, end: 201107

REACTIONS (4)
  - Drug interaction [Unknown]
  - Pain [Unknown]
  - Sensation of blood flow [Recovered/Resolved]
  - Feeling hot [Recovered/Resolved]
